FAERS Safety Report 11991048 (Version 3)
Quarter: 2018Q3

REPORT INFORMATION
  Report Type: Spontaneous
  Country: GB (occurrence: GB)
  Receive Date: 20160202
  Receipt Date: 20180831
  Transmission Date: 20181010
  Serious: Yes (Death, Congenital Anomaly, Other)
  Sender: FDA-Public Use
  Company Number: PHHY2016GB009313

PATIENT
  Sex: Female
  Weight: .26 kg

DRUGS (17)
  1. VALACICLOVIR [Suspect]
     Active Substance: VALACYCLOVIR HYDROCHLORIDE
     Indication: FOETAL EXPOSURE DURING PREGNANCY
     Dosage: MOTHER DOSE: 500 MG, BID (1000 MG, QD)
     Route: 064
  2. MIRTAZAPINE. [Suspect]
     Active Substance: MIRTAZAPINE
     Indication: FOETAL EXPOSURE DURING PREGNANCY
     Dosage: MOTHER DOSE : 30 MG, QD
     Route: 064
  3. TRUVADA [Suspect]
     Active Substance: EMTRICITABINE\TENOFOVIR DISOPROXIL FUMARATE
     Indication: FOETAL EXPOSURE DURING PREGNANCY
     Dosage: MOTHER DOSE: 1 UNK, UNK
     Route: 064
  4. NORVIR [Suspect]
     Active Substance: RITONAVIR
     Dosage: MOTHER DOSE: 4 UG/L, QD
     Route: 064
  5. NORVIR [Suspect]
     Active Substance: RITONAVIR
     Dosage: MOTHER DOSE:100 MG, QD
     Route: 064
  6. MIRTAZAPINE. [Suspect]
     Active Substance: MIRTAZAPINE
     Dosage: MOTHER DOSE :30 MG, QD
     Route: 064
  7. KALETRA [Suspect]
     Active Substance: LOPINAVIR\RITONAVIR
     Indication: FOETAL EXPOSURE DURING PREGNANCY
     Dosage: MOTHER DOSE: UNKNOWN
     Route: 064
  8. LOPINAVIR W/RITONAVIR [Suspect]
     Active Substance: LOPINAVIR\RITONAVIR
     Indication: FOETAL EXPOSURE DURING PREGNANCY
     Dosage: MOTHER DOSE: UNKNOWN
     Route: 064
  9. RITONAVIR. [Suspect]
     Active Substance: RITONAVIR
     Indication: FOETAL EXPOSURE DURING PREGNANCY
     Dosage: MOTHER DOSE :100 MG, QD
     Route: 064
  10. NORVIR [Suspect]
     Active Substance: RITONAVIR
     Indication: FOETAL EXPOSURE DURING PREGNANCY
     Dosage: MOTHER DOSE: 100 MG, QD
     Route: 064
  11. NORVIR [Suspect]
     Active Substance: RITONAVIR
     Dosage: MOTHER DOSE:100 MG, UNK
     Route: 064
  12. CYCLIZINE [Suspect]
     Active Substance: CYCLIZINE
     Indication: FOETAL EXPOSURE DURING PREGNANCY
     Dosage: MOTHER DOSE: 50 MG, TID  (150 MG, QD)
     Route: 064
  13. DARUNAVIR [Suspect]
     Active Substance: DARUNAVIR
     Indication: FOETAL EXPOSURE DURING PREGNANCY
     Dosage: MOTHER DOSE: 800 MG, QD
     Route: 064
  14. DARUNAVIR [Suspect]
     Active Substance: DARUNAVIR
     Dosage: MOTHER DOSE: 800 MG, QD
     Route: 064
  15. MIRTAZAPINE. [Suspect]
     Active Substance: MIRTAZAPINE
     Dosage: MOTHER DOSE :1 UG/LIT
     Route: 064
  16. TRUVADA [Suspect]
     Active Substance: EMTRICITABINE\TENOFOVIR DISOPROXIL FUMARATE
     Dosage: MOTHER DOSE: UNK, QD
     Route: 064
  17. TRUVADA [Suspect]
     Active Substance: EMTRICITABINE\TENOFOVIR DISOPROXIL FUMARATE
     Dosage: MOTHER DOSE: UNK
     Route: 064

REACTIONS (5)
  - Spina bifida [Fatal]
  - Foetal exposure during pregnancy [Fatal]
  - Skull malformation [Fatal]
  - Foetal death [Fatal]
  - Cerebral ventricle dilatation [Fatal]

NARRATIVE: CASE EVENT DATE: 20141126
